FAERS Safety Report 17689734 (Version 1)
Quarter: 2020Q2

REPORT INFORMATION
  Report Type: Spontaneous
  Country: CA (occurrence: CA)
  Receive Date: 20200421
  Receipt Date: 20200421
  Transmission Date: 20200714
  Serious: Yes (Other)
  Sender: FDA-Public Use
  Company Number: CA-SA-2020SA101213

PATIENT
  Age: 76 Year
  Sex: Female

DRUGS (33)
  1. DARIFENACINE [Concomitant]
  2. FUROSEMIDE. [Concomitant]
     Active Substance: FUROSEMIDE
  3. KENALOG [Concomitant]
     Active Substance: TRIAMCINOLONE ACETONIDE
     Dosage: 40 MG
     Route: 065
  4. TRIMETHOPRIM. [Concomitant]
     Active Substance: TRIMETHOPRIM
  5. ARAVA [Suspect]
     Active Substance: LEFLUNOMIDE
     Indication: PRODUCT USED FOR UNKNOWN INDICATION
     Dosage: 20 MG, QD
     Route: 065
  6. CODEINE [Concomitant]
     Active Substance: CODEINE
  7. DESOXIMETASONE. [Concomitant]
     Active Substance: DESOXIMETASONE
  8. DILAUDID [Concomitant]
     Active Substance: HYDROMORPHONE HYDROCHLORIDE
  9. RESTASIS [Concomitant]
     Active Substance: CYCLOSPORINE
  10. METHOTREXATE. [Suspect]
     Active Substance: METHOTREXATE
     Indication: PRODUCT USED FOR UNKNOWN INDICATION
     Dosage: 25 MG, QD
     Route: 065
  11. ENBREL [Suspect]
     Active Substance: ETANERCEPT
     Indication: RHEUMATOID ARTHRITIS
     Dosage: 25 MG
     Route: 065
  12. ORENCIA [Suspect]
     Active Substance: ABATACEPT
     Indication: PRODUCT USED FOR UNKNOWN INDICATION
     Route: 065
  13. REMICADE [Suspect]
     Active Substance: INFLIXIMAB
     Indication: PRODUCT USED FOR UNKNOWN INDICATION
     Dosage: 300 MG
     Route: 042
  14. LOPERAMIDE [Concomitant]
     Active Substance: LOPERAMIDE
  15. RITUXIMAB. [Concomitant]
     Active Substance: RITUXIMAB
     Route: 042
  16. HUMIRA [Suspect]
     Active Substance: ADALIMUMAB
     Indication: PRODUCT USED FOR UNKNOWN INDICATION
     Dosage: 40 MG
     Route: 058
  17. HYDROMORPHONE [Concomitant]
     Active Substance: HYDROMORPHONE
  18. OMNARIS [Concomitant]
     Active Substance: CICLESONIDE
  19. URISPAS [Concomitant]
     Active Substance: FLAVOXATE HYDROCHLORIDE
     Dosage: 200 MG
     Route: 065
  20. HYDROXYCHLOROQUINE SULFATE. [Suspect]
     Active Substance: HYDROXYCHLOROQUINE SULFATE
     Indication: PRODUCT USED FOR UNKNOWN INDICATION
     Dosage: 200 MG, BID
     Route: 065
  21. SODIUM AUROTHIOMALATE [Suspect]
     Active Substance: GOLD SODIUM THIOMALATE
     Indication: PRODUCT USED FOR UNKNOWN INDICATION
     Route: 065
  22. XELJANZ [Suspect]
     Active Substance: TOFACITINIB CITRATE
     Indication: PRODUCT USED FOR UNKNOWN INDICATION
     Route: 065
  23. OXYNEO [Concomitant]
     Active Substance: OXYCODONE
  24. ACETAMINOPHEN. [Concomitant]
     Active Substance: ACETAMINOPHEN
  25. ANAKINRA [Concomitant]
     Active Substance: ANAKINRA
     Dosage: 100 MG
     Route: 065
  26. ATIVAN [Concomitant]
     Active Substance: LORAZEPAM
  27. KADIAN [Concomitant]
     Active Substance: MORPHINE SULFATE
  28. VAGIFEM [Concomitant]
     Active Substance: ESTRADIOL
  29. ACTEMRA [Suspect]
     Active Substance: TOCILIZUMAB
     Indication: PRODUCT USED FOR UNKNOWN INDICATION
     Route: 065
  30. DIPHENHYDRAMINE. [Concomitant]
     Active Substance: DIPHENHYDRAMINE
  31. NORFLEX [Concomitant]
     Active Substance: ORPHENADRINE CITRATE
  32. PANTOPRAZOLE [Concomitant]
     Active Substance: PANTOPRAZOLE
  33. SYNTHROID [Concomitant]
     Active Substance: LEVOTHYROXINE SODIUM

REACTIONS (16)
  - Pneumonia viral [Unknown]
  - Synovitis [Unknown]
  - Anaemia [Unknown]
  - Joint swelling [Unknown]
  - Fibromyalgia [Unknown]
  - Therapeutic product effect incomplete [Unknown]
  - Arthralgia [Unknown]
  - Infection [Unknown]
  - Soft tissue disorder [Unknown]
  - Drug ineffective [Unknown]
  - Arthritis [Unknown]
  - Liver function test abnormal [Unknown]
  - Blood cholesterol increased [Unknown]
  - Herpes zoster [Unknown]
  - Leukopenia [Unknown]
  - Peripheral swelling [Unknown]
